FAERS Safety Report 5018144-2 (Version None)
Quarter: 2006Q2

REPORT INFORMATION
  Report Type: 
  Country: None (occurrence: None)
  Receive Date: 20060530
  Receipt Date: 20050215
  Transmission Date: 20061013
  Serious: Yes (Life-Threatening, Hospitalization, Other)
  Sender: FDA-Public Use
  Company Number: 2005032332

PATIENT
  Age: 49 Year
  Sex: Female
  Weight: 55 kg

DRUGS (7)
  1. LYRICA [Suspect]
     Indication: EPILEPSY
     Dosage: 50 MG (50 MG, 1 IN 1 D), ORAL
     Route: 048
     Dates: start: 20050131, end: 20050203
  2. CARBAMAZEPINE [Concomitant]
  3. VALPROATE SODIUM [Concomitant]
  4. RISPERIDONE [Concomitant]
  5. LEKOVIT CA      (CALCIUM CARBONAT,E COLECALCIFEROL) [Concomitant]
  6. ALENDRONATE SODIUM [Concomitant]
  7. SOLIFENACIN SUCCINATE (SOLIFENACIN SUCCINATE) [Concomitant]

REACTIONS (4)
  - BLOOD POTASSIUM INCREASED [None]
  - BRADYCARDIA [None]
  - CARDIAC ARREST [None]
  - HYPOTENSION [None]
